FAERS Safety Report 6079743-2 (Version None)
Quarter: 2009Q1

REPORT INFORMATION
  Report Type: 
  Country: None (occurrence: None)
  Receive Date: 20090211
  Receipt Date: 20090202
  Transmission Date: 20090719
  Serious: Yes (Hospitalization)
  Sender: FDA-Public Use
  Company Number: GXKR2009GB01422

PATIENT
  Age: 43 Year
  Sex: Male

DRUGS (10)
  1. FLUCONAZOLE [Suspect]
     Indication: ORAL CANDIDIASIS
  2. SIMVASTATIN [Suspect]
  3. RAMIPRIL [Concomitant]
  4. CLOPIDOGREL [Concomitant]
  5. GLICLAZIDE (GLICLAZIDE) [Concomitant]
  6. ATENOLOL [Concomitant]
  7. CO-TRIMOXAZOLE (CO-TRIMOXAZOLE) [Concomitant]
  8. METFORMIN HCL [Concomitant]
  9. TRUVADA (EMTRICITABINE W/TENOFOVIR DISOPROXIL FUMARATE) (EMITRICITABIN [Concomitant]
  10. EFAVIRENZ [Concomitant]

REACTIONS (13)
  - CACHEXIA [None]
  - CHEST X-RAY ABNORMAL [None]
  - CULTURE POSITIVE [None]
  - DECREASED APPETITE [None]
  - DRUG INTERACTION [None]
  - GENITAL HERPES [None]
  - GENITAL ULCERATION [None]
  - HEPATITIS B SURFACE ANTIGEN POSITIVE [None]
  - LUNG CONSOLIDATION [None]
  - RENAL IMPAIRMENT [None]
  - RHABDOMYOLYSIS [None]
  - TUBERCULOSIS [None]
  - WEIGHT DECREASED [None]
